FAERS Safety Report 9906567 (Version 2)
Quarter: 2014Q1

REPORT INFORMATION
  Report Type: Spontaneous
  Country: JP (occurrence: JP)
  Receive Date: 20140218
  Receipt Date: 20140310
  Transmission Date: 20141002
  Serious: Yes (Life-Threatening)
  Sender: FDA-Public Use
  Company Number: JP-ASTRAZENECA-2014SE10633

PATIENT
  Age: 27899 Day
  Sex: Female
  Weight: 60 kg

DRUGS (13)
  1. CUBICIN [Suspect]
     Indication: BACTERAEMIA
     Route: 041
     Dates: start: 20131225, end: 20140101
  2. CUBICIN [Suspect]
     Indication: BACTERAEMIA
     Route: 041
     Dates: start: 20140102, end: 20140111
  3. CUBICIN [Suspect]
     Indication: BACTERAEMIA
     Route: 041
     Dates: start: 20140112, end: 20140114
  4. NEXIUM [Suspect]
     Indication: GASTRIC ULCER
     Route: 048
     Dates: start: 20131231, end: 20140114
  5. CEFAMEZIN ALPHA [Concomitant]
     Indication: URINARY TRACT INFECTION
     Route: 041
     Dates: start: 20140107, end: 20140111
  6. PROMAC [Concomitant]
     Indication: GASTRIC ULCER
     Route: 048
     Dates: start: 20131224, end: 20140114
  7. NORVASC [Concomitant]
     Indication: HYPERTENSION
     Route: 048
     Dates: start: 20131227, end: 20140114
  8. NORVASC [Concomitant]
     Indication: HYPERTENSION
     Route: 048
     Dates: start: 20140107, end: 20140114
  9. AZILVA [Concomitant]
     Indication: HYPERTENSION
     Route: 048
     Dates: start: 20131228, end: 20140114
  10. MIYA BM [Concomitant]
     Indication: GASTROINTESTINAL DISORDER
     Route: 048
     Dates: start: 20131224
  11. ROZEREM [Concomitant]
     Indication: INSOMNIA
     Route: 048
     Dates: start: 20140107, end: 20140113
  12. XYLOCAINE [Concomitant]
     Indication: LOCAL ANAESTHESIA
     Route: 065
     Dates: start: 20140103, end: 20140103
  13. ALBUMINAR [Concomitant]
     Dosage: 24 TO 31-DEC-2013, 03-JAN-2014, 08-JAN-2014 (DOSE: ONE BOTTLE/DAY)
     Route: 065

REACTIONS (3)
  - Eosinophilic pneumonia [Recovering/Resolving]
  - Abscess [Unknown]
  - Rash [Recovering/Resolving]
